FAERS Safety Report 13124437 (Version 3)
Quarter: 2019Q1

REPORT INFORMATION
  Report Type: Spontaneous
  Country: US (occurrence: US)
  Receive Date: 20170118
  Receipt Date: 20190320
  Transmission Date: 20190417
  Serious: Yes (Hospitalization)
  Sender: FDA-Public Use
  Company Number: US-PFIZER INC-2017020171

PATIENT
  Age: 52 Year
  Sex: Female
  Weight: 107.5 kg

DRUGS (16)
  1. DIAZEPAM. [Concomitant]
     Active Substance: DIAZEPAM
     Indication: MUSCLE SPASMS
     Dosage: 5 MG, AS NEEDED (ONE TO THREE TIMES A DAY, WHENEVER NEEDED)
     Route: 048
  2. GABAPENTIN. [Suspect]
     Active Substance: GABAPENTIN
     Indication: NEURALGIA
     Dosage: 800 MG, 1X/DAY (ONE AT NIGHT)
     Route: 048
     Dates: start: 201612
  3. GABAPENTIN. [Suspect]
     Active Substance: GABAPENTIN
     Indication: FIBROMYALGIA
     Dosage: 800 MG, 3X/DAY
     Route: 048
  4. GABAPENTIN. [Suspect]
     Active Substance: GABAPENTIN
     Dosage: 400 MG, 1X/DAY (BREAK IT IN HALF AND JUST TAKE IT AT NIGHT TIME)
     Route: 048
  5. DIAZEPAM. [Concomitant]
     Active Substance: DIAZEPAM
     Indication: NEURITIS
  6. GABAPENTIN. [Suspect]
     Active Substance: GABAPENTIN
     Indication: BONE PAIN
     Dosage: 800 MG, 2X/DAY (ONE A NIGHT AND ONE IN THE MORNING)
     Route: 048
  7. GABAPENTIN. [Suspect]
     Active Substance: GABAPENTIN
     Dosage: 600 MG, 2X/DAY
     Dates: start: 20161130, end: 201612
  8. NORCO [Concomitant]
     Active Substance: ACETAMINOPHEN\HYDROCODONE BITARTRATE
     Indication: PAIN
     Dosage: 10 MG, 3X/DAY
     Route: 048
     Dates: start: 2013
  9. CYMBALTA [Concomitant]
     Active Substance: DULOXETINE HYDROCHLORIDE
     Indication: DEPRESSION
     Dosage: 30 MG, 2X/DAY
     Route: 048
     Dates: start: 1990
  10. DIAZEPAM. [Concomitant]
     Active Substance: DIAZEPAM
     Indication: ANXIETY
     Dosage: 5 MG, 3X/DAY
     Dates: start: 2013
  11. ENALAPRIL [Concomitant]
     Active Substance: ENALAPRIL
     Indication: BLOOD PRESSURE ABNORMAL
     Dosage: 10 MG, 1X/DAY
     Route: 048
     Dates: start: 2000
  12. SYNTHROID [Concomitant]
     Active Substance: LEVOTHYROXINE SODIUM
     Indication: HYPOTHYROIDISM
  13. SYNTHROID [Concomitant]
     Active Substance: LEVOTHYROXINE SODIUM
     Indication: THYROID DISORDER
     Dosage: 150 UG, 1X/DAY
     Route: 048
     Dates: start: 2000
  14. ZYRTEC [Concomitant]
     Active Substance: CETIRIZINE HYDROCHLORIDE
     Indication: HYPERSENSITIVITY
     Dosage: 10 MG, 1X/DAY
     Route: 048
     Dates: start: 2014
  15. HYDROCHLOROTHIAZIDE. [Concomitant]
     Active Substance: HYDROCHLOROTHIAZIDE
     Indication: BLOOD PRESSURE ABNORMAL
     Dosage: 12.5 MG, 1X/DAY
     Route: 048
     Dates: start: 2000
  16. CYMBALTA [Concomitant]
     Active Substance: DULOXETINE HYDROCHLORIDE
     Indication: NEURALGIA
     Dosage: 30 MG, 2X/DAY
     Route: 048
     Dates: start: 20161130

REACTIONS (13)
  - Vision blurred [Recovered/Resolved]
  - Swollen tongue [Unknown]
  - Product use in unapproved indication [Recovered/Resolved]
  - Muscle twitching [Recovered/Resolved]
  - Tongue disorder [Recovered/Resolved]
  - Paraesthesia [Unknown]
  - Diarrhoea [Recovered/Resolved]
  - Drug hypersensitivity [Unknown]
  - Hypersensitivity [Recovered/Resolved]
  - Headache [Recovered/Resolved]
  - Lip blister [Recovered/Resolved]
  - Muscle spasms [Recovered/Resolved]
  - Rash [Unknown]

NARRATIVE: CASE EVENT DATE: 201612
